FAERS Safety Report 7005701-7 (Version None)
Quarter: 2010Q3

REPORT INFORMATION
  Report Type: 
  Country: None (occurrence: None)
  Receive Date: 20100921
  Receipt Date: 20100914
  Transmission Date: 20110219
  Serious: Yes (Life-Threatening, Hospitalization, Disabling)
  Sender: FDA-Public Use
  Company Number: US-MERCK-1008USA02064

PATIENT
  Age: 28 Year
  Sex: Female

DRUGS (6)
  1. ISENTRESS [Suspect]
     Indication: HIV INFECTION
     Route: 048
     Dates: start: 20100623, end: 20100706
  2. AMPHOTERICIN B [Concomitant]
     Route: 065
     Dates: end: 20100706
  3. DIFLUCAN [Concomitant]
     Route: 065
     Dates: end: 20100706
  4. CLINDAMYCIN [Concomitant]
     Route: 065
     Dates: end: 20100706
  5. LEUCOVORIN CALCIUM [Concomitant]
     Route: 065
     Dates: end: 20100706
  6. ZITHROMAX [Concomitant]
     Route: 065
     Dates: end: 20100706

REACTIONS (6)
  - ABDOMINAL PAIN [None]
  - CARDIAC FAILURE CONGESTIVE [None]
  - HEMIPARESIS [None]
  - PANCREATITIS [None]
  - RENAL FAILURE [None]
  - WEIGHT DECREASED [None]
